FAERS Safety Report 25626718 (Version 1)
Quarter: 2025Q3

REPORT INFORMATION
  Report Type: Spontaneous
  Country: SG (occurrence: SG)
  Receive Date: 20250731
  Receipt Date: 20250731
  Transmission Date: 20251020
  Serious: Yes (Other)
  Sender: MYLAN
  Company Number: SG-MYLANLABS-2025M1063646

PATIENT
  Age: 59 Year
  Sex: Male

DRUGS (1)
  1. ATORVASTATIN [Suspect]
     Active Substance: ATORVASTATIN
     Indication: Product used for unknown indication

REACTIONS (2)
  - Autoantibody positive [Unknown]
  - Immune-mediated myositis [Unknown]

NARRATIVE: CASE EVENT DATE: 20250711
